FAERS Safety Report 5165153-9 (Version None)
Quarter: 2006Q4

REPORT INFORMATION
  Report Type: 
  Country: None (occurrence: None)
  Receive Date: 20061124
  Receipt Date: 20061120
  Transmission Date: 20070319
  Serious: Yes (Disabling)
  Sender: FDA-Public Use
  Company Number: S06-FRA-04633-01

PATIENT
  Age: 51 Year
  Sex: Male
  Weight: 74 kg

DRUGS (2)
  1. SEROPLEX (ESCITALOPRAM) [Suspect]
     Indication: GENERALISED ANXIETY DISORDER
     Dosage: 10 MG QD PO
     Route: 048
     Dates: start: 20060612, end: 20060901
  2. SEROPLEX (ESCITALOPRAM) [Suspect]
     Indication: GENERALISED ANXIETY DISORDER
     Dosage: 10 MG QD PO
     Route: 048
     Dates: start: 20060901, end: 20061023

REACTIONS (1)
  - HAEMATOSPERMIA [None]
